FAERS Safety Report 21499047 (Version 1)
Quarter: 2022Q4

REPORT INFORMATION
  Report Type: Spontaneous
  Country: US (occurrence: None)
  Receive Date: 20221022
  Receipt Date: 20221022
  Transmission Date: 20230113
  Serious: No
  Sender: FDA-Public Use
  Company Number: None

PATIENT
  Age: 18 Year
  Sex: Male
  Weight: 114.75 kg

DRUGS (1)
  1. CREST PRO-HEALTH ALL-AROUND PROTECTION [Suspect]
     Active Substance: STANNOUS FLUORIDE
     Dosage: OTHER QUANTITY : 3 TABLESPOON(S);?FREQUENCY : AT BEDTIME;?
     Route: 048
     Dates: start: 20221021, end: 20221022

REACTIONS (5)
  - Oral discomfort [None]
  - Taste disorder [None]
  - Tongue discomfort [None]
  - Feeling hot [None]
  - Glossitis [None]

NARRATIVE: CASE EVENT DATE: 20221022
